FAERS Safety Report 5082055-7 (Version None)
Quarter: 2006Q3

REPORT INFORMATION
  Report Type: 
  Country: None (occurrence: None)
  Receive Date: 20060811
  Receipt Date: 20060803
  Transmission Date: 20061208
  Serious: Yes (Death)
  Sender: FDA-Public Use
  Company Number: 2006072199

PATIENT
  Age: 70 Year
  Sex: Female
  Weight: 40 kg

DRUGS (9)
  1. ZYVOX [Suspect]
     Indication: PNEUMONIA
     Dosage: 1200 MG (600 MG,2 IN 1 D), INTRAVENOUS
     Route: 042
     Dates: start: 20050828, end: 20050904
  2. NOREPINEPHRINE BITARTRATE [Concomitant]
  3. MIDAZOLAM [Concomitant]
  4. HYDROCORTONE (HYDROCORTISONE) [Concomitant]
  5. TOBRAMYCIN SULFATE [Concomitant]
  6. PENMALIN (PIPERACILLIN SODIUM) [Concomitant]
  7. FLUCONAZOLE [Concomitant]
  8. TAZOCIN (PIPERACILLIN SODIUM, TAZOBACTAM SODIUM) [Concomitant]
  9. PAZUFLOXACIN MESILATE [Concomitant]

REACTIONS (5)
  - ACUTE RESPIRATORY DISTRESS SYNDROME [None]
  - HEPATIC ENZYME INCREASED [None]
  - LUNG INFECTION PSEUDOMONAL [None]
  - PLATELET COUNT DECREASED [None]
  - SEPTIC SHOCK [None]
